FAERS Safety Report 8143568-4 (Version None)
Quarter: 2012Q1

REPORT INFORMATION
  Report Type: 
  Country: None (occurrence: None)
  Receive Date: 20120217
  Receipt Date: 20111025
  Transmission Date: 20120608
  Serious: No
  Sender: FDA-Public Use
  Company Number: US-GLAXOSMITHKLINE-A0950452A

PATIENT
  Age: 73 Year
  Sex: Male

DRUGS (4)
  1. LUPRON [Concomitant]
  2. VOTRIENT [Suspect]
     Indication: RENAL CELL CARCINOMA
     Dosage: 800MG PER DAY
     Route: 048
     Dates: start: 20111012
  3. NORVASC [Concomitant]
  4. CALCIUM [Concomitant]

REACTIONS (10)
  - HEADACHE [None]
  - LIP PAIN [None]
  - TONGUE DISORDER [None]
  - GINGIVAL PAIN [None]
  - GINGIVAL ERYTHEMA [None]
  - ORAL PAIN [None]
  - GLOSSODYNIA [None]
  - DYSPHAGIA [None]
  - STOMATITIS [None]
  - HYPERTENSION [None]
